FAERS Safety Report 7689276-5 (Version None)
Quarter: 2011Q3

REPORT INFORMATION
  Report Type: 
  Country: None (occurrence: None)
  Receive Date: 20110817
  Receipt Date: 20110815
  Transmission Date: 20111222
  Serious: Yes (Hospitalization, Other)
  Sender: FDA-Public Use
  Company Number: US-B.I. PHARMACEUTICALS,INC./RIDGEFIELD-2011-BP-19403PF

PATIENT
  Sex: Female

DRUGS (8)
  1. CHANTIX [Suspect]
     Indication: SMOKING CESSATION THERAPY
     Dosage: 0.5 MG
     Route: 048
     Dates: start: 20100101, end: 20100101
  2. METOPROLOL TARTRATE [Concomitant]
     Indication: HEART RATE INCREASED
  3. DIOVAN HCT [Concomitant]
  4. SPIRIVA [Suspect]
     Indication: CHRONIC OBSTRUCTIVE PULMONARY DISEASE
     Route: 055
  5. ALPRAZOLAM [Suspect]
     Indication: ANXIETY
     Dosage: 0.75 MG
     Route: 048
     Dates: start: 20090101, end: 20110101
  6. SIMAVASTATIN [Concomitant]
     Indication: BLOOD CHOLESTEROL ABNORMAL
  7. CHANTIX [Suspect]
     Dosage: 0.5 MG
     Route: 048
     Dates: start: 20110101
  8. ALPRAZOLAM [Suspect]
     Dosage: 1.5 MG
     Route: 048
     Dates: start: 20110101

REACTIONS (4)
  - NERVOUSNESS [None]
  - ABNORMAL DREAMS [None]
  - ILL-DEFINED DISORDER [None]
  - WEIGHT DECREASED [None]
